FAERS Safety Report 5847372-9 (Version None)
Quarter: 2008Q3

REPORT INFORMATION
  Report Type: 
  Country: None (occurrence: None)
  Receive Date: 20080815
  Receipt Date: 20080806
  Transmission Date: 20090109
  Serious: Yes (Hospitalization, Other)
  Sender: FDA-Public Use
  Company Number: US-ABBOTT-08P-163-0470693-00

PATIENT
  Age: 47 Year
  Sex: Male

DRUGS (6)
  1. RITONAVIR SOFT GELATIN CAPSULES [Suspect]
     Indication: HIV INFECTION
     Dates: start: 20070901
  2. APTIVUS [Suspect]
     Indication: HIV INFECTION
     Dates: start: 20070901
  3. RALTEGRAVIR [Concomitant]
     Indication: HIV INFECTION
     Dates: start: 20070901
  4. MARAVIROC [Concomitant]
     Indication: HIV INFECTION
     Dates: start: 20070901
  5. TENOFOVIR [Concomitant]
     Indication: HIV INFECTION
     Dates: start: 20070901
  6. EMTRICITABINE [Concomitant]
     Indication: HIV INFECTION
     Dates: start: 20070901

REACTIONS (7)
  - AIDS DEMENTIA COMPLEX [None]
  - BRAIN OEDEMA [None]
  - CEREBELLAR ATAXIA [None]
  - DEMENTIA [None]
  - GRAND MAL CONVULSION [None]
  - IMMUNE RECONSTITUTION SYNDROME [None]
  - VIRAL LOAD INCREASED [None]
